FAERS Safety Report 23223765 (Version 1)
Quarter: 2023Q4

REPORT INFORMATION
  Report Type: Spontaneous
  Country: US (occurrence: US)
  Receive Date: 20231124
  Receipt Date: 20231124
  Transmission Date: 20240110
  Serious: Yes (Other)
  Sender: FDA-Public Use
  Company Number: US-NOVITIUMPHARMA-2023USNVP02015

PATIENT
  Sex: Male

DRUGS (5)
  1. PREDNISONE [Suspect]
     Active Substance: PREDNISONE
     Indication: Palisaded neutrophilic granulomatous dermatitis
  2. TRIAMCINOLONE [Concomitant]
     Active Substance: TRIAMCINOLONE
     Indication: Palisaded neutrophilic granulomatous dermatitis
  3. DAPSONE [Concomitant]
     Active Substance: DAPSONE
     Indication: Palisaded neutrophilic granulomatous dermatitis
  4. CYCLOSPORINE [Concomitant]
     Active Substance: CYCLOSPORINE
     Indication: Palisaded neutrophilic granulomatous dermatitis
  5. USTEKINUMAB [Concomitant]
     Active Substance: USTEKINUMAB
     Indication: Palisaded neutrophilic granulomatous dermatitis

REACTIONS (1)
  - Chronic myelomonocytic leukaemia [Unknown]
